FAERS Safety Report 6642496-0 (Version None)
Quarter: 2010Q1

REPORT INFORMATION
  Report Type: 
  Country: None (occurrence: None)
  Receive Date: 20100319
  Receipt Date: 20100310
  Transmission Date: 20100710
  Serious: Yes (Hospitalization)
  Sender: FDA-Public Use
  Company Number: US-JNJFOC-20100304172

PATIENT
  Sex: Male
  Weight: 83.46 kg

DRUGS (10)
  1. REMICADE [Suspect]
     Indication: ANKYLOSING SPONDYLITIS
     Route: 042
  2. REMICADE [Suspect]
     Route: 042
  3. PREDNISONE [Concomitant]
  4. NEXIUM [Concomitant]
     Route: 048
  5. CYMBALTA [Concomitant]
     Route: 048
  6. PENTASA [Concomitant]
     Indication: GASTROINTESTINAL DISORDER
     Route: 048
  7. NABUMETONE [Concomitant]
     Route: 048
  8. ZEGERID [Concomitant]
     Dosage: DOSE: 40/1100
     Route: 048
  9. METHOTREXATE [Concomitant]
  10. OTHER THERAPEUTIC MEDICATION [Concomitant]
     Route: 048

REACTIONS (2)
  - ADVERSE EVENT [None]
  - INTESTINAL OPERATION [None]
